FAERS Safety Report 5824385-4 (Version None)
Quarter: 2008Q3

REPORT INFORMATION
  Report Type: 
  Country: None (occurrence: None)
  Receive Date: 20080728
  Receipt Date: 20080718
  Transmission Date: 20090109
  Serious: Yes (Other)
  Sender: FDA-Public Use
  Company Number: A0646271A

PATIENT
  Age: 66 Year
  Sex: Female
  Weight: 72.7 kg

DRUGS (14)
  1. TYKERB [Suspect]
     Indication: BREAST CANCER
     Dosage: 1250MG PER DAY
     Route: 048
     Dates: start: 20070330
  2. XELODA [Concomitant]
     Dosage: 500MG TWICE PER DAY
     Route: 048
  3. ADALAT [Concomitant]
  4. CORGARD [Concomitant]
  5. COZAAR [Concomitant]
  6. PLAVIX [Concomitant]
  7. ASPIRIN [Concomitant]
  8. CENTRUM [Concomitant]
  9. OSCAL [Concomitant]
  10. PREVACID [Concomitant]
  11. B-6 [Concomitant]
  12. PREDNISONE TAB [Concomitant]
  13. IMODIUM [Concomitant]
  14. ACIDOPHILUS [Concomitant]

REACTIONS (4)
  - DIARRHOEA [None]
  - METASTASIS [None]
  - NAUSEA [None]
  - THERAPEUTIC RESPONSE DECREASED [None]
